FAERS Safety Report 4608463-3 (Version None)
Quarter: 2005Q1

REPORT INFORMATION
  Report Type: 
  Country: None (occurrence: None)
  Receive Date: 20050311
  Receipt Date: 20050311
  Transmission Date: 20050727
  Serious: Yes (Other)
  Sender: FDA-Public Use
  Company Number: None

PATIENT
  Sex: Male
  Weight: 95.6 kg

DRUGS (1)
  1. INTERERFERON -ALPHA [Suspect]
     Dosage: 9.0 MU SC 3X /WEEK. CYCLE =4 WEEKS
     Route: 058
     Dates: start: 20050121

REACTIONS (7)
  - BLOOD PRESSURE DIASTOLIC DECREASED [None]
  - BODY TEMPERATURE DECREASED [None]
  - DIZZINESS [None]
  - NAUSEA [None]
  - SYNCOPE [None]
  - VIRAL INFECTION [None]
  - VOMITING [None]
